FAERS Safety Report 15667837 (Version 1)
Quarter: 2018Q4

REPORT INFORMATION
  Report Type: Spontaneous
  Country: FR (occurrence: FR)
  Receive Date: 20181128
  Receipt Date: 20181128
  Transmission Date: 20190205
  Serious: Yes (Other)
  Sender: FDA-Public Use
  Company Number: FR-TEIKOKU PHARMA USA-TPU2018-00731

PATIENT
  Age: 91 Year
  Sex: Female

DRUGS (1)
  1. VERSATIS [Suspect]
     Active Substance: LIDOCAINE
     Indication: PAIN
     Route: 062
     Dates: start: 20180911, end: 20180917

REACTIONS (3)
  - Confusional state [Recovered/Resolved]
  - Miosis [Recovered/Resolved]
  - Hallucinations, mixed [Recovered/Resolved]

NARRATIVE: CASE EVENT DATE: 20180912
